FAERS Safety Report 7091041-7 (Version None)
Quarter: 2010Q4

REPORT INFORMATION
  Report Type: 
  Country: None (occurrence: None)
  Receive Date: 20101105
  Receipt Date: 20101105
  Transmission Date: 20110411
  Serious: Yes (Hospitalization)
  Sender: FDA-Public Use
  Company Number: None

PATIENT
  Age: 61 Year
  Sex: Female
  Weight: 97.2 kg

DRUGS (11)
  1. DECITABINE 0.2MG/KG [Suspect]
     Indication: MYELODYSPLASTIC SYNDROME
     Dosage: 0.2 MG/KG SUB-Q 2X/WK
     Route: 058
     Dates: start: 20101103
  2. CIPRO [Concomitant]
  3. XANAX [Concomitant]
  4. NORVASC [Concomitant]
  5. ZOLPIDEM [Concomitant]
  6. HYDROMORPHONE HCL [Concomitant]
  7. COLACE [Concomitant]
  8. PRILOSEC [Concomitant]
  9. ACYCLOVIR [Concomitant]
  10. ZOLOFT [Concomitant]
  11. ULTRAM [Concomitant]

REACTIONS (2)
  - FEBRILE NEUTROPENIA [None]
  - INFUSION SITE PAIN [None]
